FAERS Safety Report 9725510 (Version 1)
Quarter: 2013Q4

REPORT INFORMATION
  Report Type: Report from Study
  Country: BR (occurrence: BR)
  Receive Date: 20131203
  Receipt Date: 20131203
  Transmission Date: 20140711
  Serious: Yes (Disabling)
  Sender: FDA-Public Use
  Company Number: PHHY2013BR138239

PATIENT
  Sex: Male
  Weight: 75.6 kg

DRUGS (4)
  1. ONBREZ [Suspect]
     Indication: LUNG DISORDER
     Dosage: 300 MG, QD
  2. ONBREZ [Suspect]
     Indication: CHRONIC OBSTRUCTIVE PULMONARY DISEASE
  3. MIFLASONA [Concomitant]
     Indication: LUNG DISORDER
     Dosage: 200 MG, UNK
     Dates: start: 201111
  4. TORLOS [Concomitant]
     Indication: BLOOD PRESSURE INCREASED
     Dosage: 50 MG, UNK
     Dates: start: 1993

REACTIONS (7)
  - Lung disorder [Unknown]
  - Dyspnoea [Unknown]
  - Blood pressure fluctuation [Unknown]
  - Rash macular [Unknown]
  - Skin discolouration [Unknown]
  - Pruritus [Unknown]
  - Chest pain [Unknown]
